FAERS Safety Report 6186016-6 (Version None)
Quarter: 2009Q2

REPORT INFORMATION
  Report Type: 
  Country: None (occurrence: None)
  Receive Date: 20090507
  Receipt Date: 20090421
  Transmission Date: 20091009
  Serious: Yes (Hospitalization)
  Sender: FDA-Public Use
  Company Number: 2009S1003626

PATIENT
  Sex: Female

DRUGS (1)
  1. PHOSPHOSODA FALVOR NOT SPECIFIED [Suspect]
     Indication: COLONOSCOPY
     Dosage: PO
     Route: 048
     Dates: start: 20060720, end: 20060720

REACTIONS (3)
  - DIARRHOEA [None]
  - NEPHROGENIC ANAEMIA [None]
  - RENAL FAILURE ACUTE [None]
